FAERS Safety Report 4842056-8 (Version None)
Quarter: 2005Q4

REPORT INFORMATION
  Report Type: 
  Country: None (occurrence: None)
  Receive Date: 20051130
  Receipt Date: 20051118
  Transmission Date: 20060501
  Serious: Yes (Other)
  Sender: FDA-Public Use
  Company Number: PHMT2005CA00679

PATIENT
  Sex: Female

DRUGS (1)
  1. ZOMETA [Suspect]
     Indication: BREAST CANCER METASTATIC
     Dosage: 4 MG, UNK
     Route: 042
     Dates: start: 20010101, end: 20051001

REACTIONS (5)
  - BONE DISORDER [None]
  - DYSGEUSIA [None]
  - ORAL PAIN [None]
  - OSTEONECROSIS [None]
  - TOOTH DISORDER [None]
